FAERS Safety Report 9346577 (Version 1)
Quarter: 2013Q2

REPORT INFORMATION
  Report Type: Spontaneous
  Country: AE (occurrence: AE)
  Receive Date: 20130613
  Receipt Date: 20130613
  Transmission Date: 20140414
  Serious: Yes (Other)
  Sender: FDA-Public Use
  Company Number: AE-009507513-1306ARE000909

PATIENT
  Age: 53 Year
  Sex: Female

DRUGS (1)
  1. FOSAVANCE [Suspect]
     Indication: OSTEOPOROSIS
     Dosage: UNK, QW

REACTIONS (4)
  - Fracture [Unknown]
  - Surgery [Unknown]
  - Myalgia [Recovered/Resolved]
  - Vitamin D deficiency [Unknown]
